FAERS Safety Report 5237617-0 (Version None)
Quarter: 2007Q1

REPORT INFORMATION
  Report Type: 
  Country: None (occurrence: None)
  Receive Date: 20070214
  Receipt Date: 20070203
  Transmission Date: 20070707
  Serious: Yes (Hospitalization)
  Sender: FDA-Public Use
  Company Number: JP-JNJFOC-20061206982

PATIENT
  Sex: Female
  Weight: 41.95 kg

DRUGS (15)
  1. REMICADE [Suspect]
     Route: 042
  2. REMICADE [Suspect]
     Route: 042
  3. REMICADE [Suspect]
     Route: 042
  4. REMICADE [Suspect]
     Route: 042
  5. REMICADE [Suspect]
     Route: 042
  6. REMICADE [Suspect]
     Route: 042
  7. REMICADE [Suspect]
     Route: 042
  8. REMICADE [Suspect]
     Route: 042
  9. REMICADE [Suspect]
     Route: 042
  10. REMICADE [Suspect]
     Indication: BEHCET'S SYNDROME
     Route: 042
  11. MYDRIN [Concomitant]
     Indication: PROPHYLAXIS
     Dosage: DATE OF ADMINISTRATION: BEFORE 25-OCT-05. ROUTE OF ADMINISTRATION: IO FOR RIGHT AND LEFT EYE
     Route: 047
  12. ADOFEED [Concomitant]
     Indication: SEDATION
  13. ADOFEED [Concomitant]
     Indication: FRACTURE
  14. ADOFEED [Concomitant]
     Indication: ARTHRITIS
     Dosage: DATE OF ADMINISTRATION: BEFORE 25-OCT-06. ROUTE OF ADMINISTRATION: TO
  15. ISODINE GARGLE [Concomitant]
     Indication: PERIODONTITIS
     Dosage: DATE OF ADMINISTRATION: BEFORE 25-OCT-05. ROUTE OF ADMINISTRATION: TO

REACTIONS (1)
  - INTESTINAL ISCHAEMIA [None]
